FAERS Safety Report 16456333 (Version 1)
Quarter: 2019Q2

REPORT INFORMATION
  Report Type: Spontaneous
  Country: US (occurrence: US)
  Receive Date: 20190620
  Receipt Date: 20190620
  Transmission Date: 20190711
  Serious: Yes (Other)
  Sender: FDA-Public Use
  Company Number: US-PFIZER INC-2019258433

PATIENT
  Age: 73 Year
  Sex: Male
  Weight: 95 kg

DRUGS (22)
  1. TOVIAZ [Suspect]
     Active Substance: FESOTERODINE FUMARATE
     Dosage: 4 MG, 1X/DAY( BY MOUTH BY ONCE)
     Route: 048
     Dates: start: 20190529
  2. TOVIAZ [Suspect]
     Active Substance: FESOTERODINE FUMARATE
     Dosage: 8 MG, UNK
  3. TOVIAZ [Suspect]
     Active Substance: FESOTERODINE FUMARATE
     Dosage: 8 MG, DAILY
     Route: 048
  4. OMEPRAZOLE. [Concomitant]
     Active Substance: OMEPRAZOLE
     Indication: GASTROOESOPHAGEAL REFLUX DISEASE
     Dosage: 40 MG, 1X/DAY(MOUTH ONCE DAILY   )
     Route: 048
  5. BUMETANIDE. [Concomitant]
     Active Substance: BUMETANIDE
     Indication: FLUID RETENTION
  6. PRAVASTATIN. [Concomitant]
     Active Substance: PRAVASTATIN
     Indication: BLOOD CHOLESTEROL
     Dosage: 10 MG, 1X/DAY(MOUTH ONCE AT NIGHT )
     Route: 048
     Dates: start: 2016
  7. LOSARTAN. [Concomitant]
     Active Substance: LOSARTAN
     Indication: BLOOD CHOLESTEROL
     Dosage: 50 MG, 1X/DAY(BY MOUTH IN THE MORNING )
     Route: 048
     Dates: start: 2016
  8. ASPIRIN [ACETYLSALICYLIC ACID] [Concomitant]
     Active Substance: ASPIRIN
     Indication: CEREBROVASCULAR ACCIDENT
  9. ASPIRIN [ACETYLSALICYLIC ACID] [Concomitant]
     Active Substance: ASPIRIN
     Indication: ANTICOAGULANT THERAPY
  10. SALINE [SODIUM CHLORIDE] [Concomitant]
     Active Substance: SODIUM CHLORIDE
     Indication: DYSPNOEA
  11. ASPIRIN [ACETYLSALICYLIC ACID] [Concomitant]
     Active Substance: ASPIRIN
     Indication: MYOCARDIAL INFARCTION
     Dosage: 325 MG, 1X/DAY(TABLET BY MOUTH ONCE DAILY  )
     Route: 048
     Dates: start: 2016
  12. SALINE [SODIUM CHLORIDE] [Concomitant]
     Active Substance: SODIUM CHLORIDE
     Indication: SINUSITIS
  13. REMERON [Concomitant]
     Active Substance: MIRTAZAPINE
     Indication: PSYCHOTHERAPY
     Dosage: 45 MG, 1X/DAY(TABLET BY MOUTH ONCE DAILY  )
     Route: 048
  14. RANITIDINE. [Concomitant]
     Active Substance: RANITIDINE
     Indication: GASTROOESOPHAGEAL REFLUX DISEASE
     Dosage: 150 MG, 2X/DAY(ONE TABLETS BY MOUTH TWICE DAILY  )
     Route: 048
  15. BUMETANIDE. [Concomitant]
     Active Substance: BUMETANIDE
     Indication: POLYURIA
     Dosage: 1 MG, 1X/DAY(BY MOUTH ONCE DAILY  )
     Route: 048
     Dates: start: 2016
  16. POTASSIUM CHLORIDE. [Concomitant]
     Active Substance: POTASSIUM CHLORIDE
     Indication: POTASSIUM HYDROXIDE PREPARATION POSITIVE
     Dosage: 10 MG, 1X/DAY(BY MOUTH ONCE AT NIGHT )
     Route: 048
     Dates: start: 2016
  17. CLARITINE [Concomitant]
     Active Substance: LORATADINE
     Indication: SINUSITIS
     Dosage: UNK UNK, 1X/DAY
     Dates: start: 2016
  18. TRAZODONE [Concomitant]
     Active Substance: TRAZODONE HYDROCHLORIDE
     Indication: PSYCHOTHERAPY
     Dosage: UNK
  19. BUPROFEN [Concomitant]
     Active Substance: IBUPROFEN
     Indication: PSYCHOTHERAPY
     Dosage: TWO TABLETS BY MOUTH IN THE MORNING
     Route: 048
  20. KLONOPIN [Concomitant]
     Active Substance: CLONAZEPAM
     Indication: PSYCHOTHERAPY
     Dosage: UNK, 1X/DAY (1/2 TABLET BY MOUTH IN THE MORNING   )
     Route: 048
  21. ATENOLOL. [Concomitant]
     Active Substance: ATENOLOL
     Indication: AORTIC ANEURYSM
     Dosage: 25 MG, 1X/DAY(ONCE DAILY AT NIGHT  )
     Route: 048
  22. SALINE [SODIUM CHLORIDE] [Concomitant]
     Active Substance: SODIUM CHLORIDE
     Indication: NASAL SEPTAL OPERATION
     Dosage: UNK

REACTIONS (7)
  - Neoplasm recurrence [Unknown]
  - Dyspnoea [Unknown]
  - Urinary tract infection [Recovered/Resolved]
  - Dizziness [Unknown]
  - Product prescribing error [Unknown]
  - Blood cholesterol abnormal [Unknown]
  - Drug ineffective [Unknown]

NARRATIVE: CASE EVENT DATE: 201905
